FAERS Safety Report 24555436 (Version 5)
Quarter: 2024Q4

REPORT INFORMATION
  Report Type: Spontaneous
  Country: US (occurrence: US)
  Receive Date: 20241028
  Receipt Date: 20241125
  Transmission Date: 20250114
  Serious: Yes (Death, Hospitalization, Other)
  Sender: NOVARTIS
  Company Number: US-002147023-NVSC2024US208591

PATIENT
  Age: 77 Year
  Sex: Male
  Weight: 80.55 kg

DRUGS (26)
  1. PLUVICTO [Suspect]
     Active Substance: LUTETIUM LU-177 VIPIVOTIDE TETRAXETAN
     Indication: Prostate cancer
     Dosage: 1 DOSAGE FORM (1 TX), Q6W
     Route: 042
     Dates: start: 20240627, end: 20240827
  2. EFFEXOR [Concomitant]
     Active Substance: VENLAFAXINE HYDROCHLORIDE
     Indication: Product used for unknown indication
     Dosage: 75 MG, QD
     Route: 048
     Dates: start: 20241014, end: 20241015
  3. CRESTOR [Concomitant]
     Active Substance: ROSUVASTATIN CALCIUM
     Indication: Product used for unknown indication
     Dosage: 20 MG, QD (30 TABLETS)
     Route: 048
     Dates: start: 20240820, end: 20241015
  4. CRESTOR [Concomitant]
     Active Substance: ROSUVASTATIN CALCIUM
     Dosage: 10 MG, QD
     Route: 048
     Dates: start: 20241014
  5. PLAVIX [Concomitant]
     Active Substance: CLOPIDOGREL BISULFATE
     Indication: Product used for unknown indication
     Dosage: 75 MG, QD
     Route: 048
     Dates: start: 20241014, end: 20241015
  6. PROTONIX [Concomitant]
     Active Substance: PANTOPRAZOLE SODIUM
     Indication: Product used for unknown indication
     Dosage: 40 MG, QD (EVERY MORNING BEFORE BREAKFAST)
     Route: 048
     Dates: start: 20241014, end: 20241015
  7. SOLU-CORTEF [Concomitant]
     Active Substance: HYDROCORTISONE SODIUM SUCCINATE
     Indication: Product used for unknown indication
     Dosage: 2 ML, Q6H (100 MG, TOTAL INTO THE VEIN)
     Route: 042
     Dates: start: 20241013, end: 20241015
  8. MEROPENEM [Concomitant]
     Active Substance: MEROPENEM
     Indication: Product used for unknown indication
     Dosage: 0.5 G, Q12H (500 MG, TOTAL INTO THE VEIN)
     Route: 042
     Dates: start: 20241013, end: 20241015
  9. MEROPENEM [Concomitant]
     Active Substance: MEROPENEM
     Dosage: 500 MG, Q12H
     Route: 042
  10. LEVOPHED [Concomitant]
     Active Substance: NOREPINEPHRINE BITARTRATE
     Indication: Product used for unknown indication
     Dosage: UNK
     Route: 065
  11. ASPIRIN [Concomitant]
     Active Substance: ASPIRIN
     Indication: Product used for unknown indication
     Dosage: 81 MG, QD
     Route: 048
  12. LOVENOX [Concomitant]
     Active Substance: ENOXAPARIN SODIUM
     Indication: Product used for unknown indication
     Dosage: 40 MG
     Route: 058
  13. LIDOCAINE [Concomitant]
     Active Substance: LIDOCAINE
     Indication: Product used for unknown indication
     Dosage: UNK, PRN
     Route: 066
  14. MELATONIN [Concomitant]
     Active Substance: MELATONIN
     Indication: Product used for unknown indication
     Dosage: 3 MG, PRN (AT BED TIME)
     Route: 048
  15. BACTROBAN [Concomitant]
     Active Substance: BACTROBAN
     Indication: Antibiotic therapy
     Dosage: 1 DOSAGE FORM
     Route: 065
     Dates: start: 20241013
  16. TOPROL XL [Concomitant]
     Active Substance: METOPROLOL SUCCINATE
     Indication: Product used for unknown indication
     Dosage: 12.5 MG, QD
     Route: 048
  17. ZOFRAN [Concomitant]
     Active Substance: ONDANSETRON HYDROCHLORIDE
     Indication: Product used for unknown indication
     Dosage: 4 MG, Q6H (PRN)
     Route: 042
  18. ZOFRAN [Concomitant]
     Active Substance: ONDANSETRON HYDROCHLORIDE
     Dosage: 4 MG, Q8H (PRN)
     Route: 048
  19. NARCAN [Concomitant]
     Active Substance: NALOXONE HYDROCHLORIDE
     Indication: Product used for unknown indication
     Dosage: 0.1 MG, PRN
     Route: 042
  20. ROXICODONE [Concomitant]
     Active Substance: OXYCODONE HYDROCHLORIDE
     Indication: Product used for unknown indication
     Dosage: 15 MG, Q4H (PRN)
     Route: 048
  21. MIRALAX [Concomitant]
     Active Substance: POLYETHYLENE GLYCOL 3350
     Indication: Product used for unknown indication
     Dosage: 17 G, QD
     Route: 048
     Dates: start: 20241014
  22. COMPAZINE [Concomitant]
     Active Substance: PROCHLORPERAZINE MALEATE
     Indication: Product used for unknown indication
     Dosage: 5 MG, Q6H (PRN)
     Route: 042
  23. SENOKOT [Concomitant]
     Active Substance: SENNOSIDES
     Indication: Product used for unknown indication
     Dosage: 17.2 MG (AT BED TIME)
     Route: 048
  24. SODIUM CHLORIDE [Concomitant]
     Active Substance: SODIUM CHLORIDE
     Indication: Product used for unknown indication
     Dosage: 3 ML, QD
     Route: 042
     Dates: start: 20241013, end: 20241013
  25. SODIUM CHLORIDE [Concomitant]
     Active Substance: SODIUM CHLORIDE
     Dosage: 3 ML, BID
     Route: 042
     Dates: start: 20241013, end: 20241013
  26. SODIUM CHLORIDE [Concomitant]
     Active Substance: SODIUM CHLORIDE
     Dosage: 100 UNK (ML/HR)
     Route: 042

REACTIONS (39)
  - Death [Fatal]
  - Acute kidney injury [Unknown]
  - Bone pain [Unknown]
  - Swelling [Unknown]
  - Microangiopathic haemolytic anaemia [Unknown]
  - Tumour lysis syndrome [Unknown]
  - Disseminated intravascular coagulation [Unknown]
  - Systemic inflammatory response syndrome [Unknown]
  - Bone cancer [Unknown]
  - Bone marrow tumour cell infiltration [Unknown]
  - Second primary malignancy [Unknown]
  - Autoimmune haemolytic anaemia [Unknown]
  - Pancytopenia [Unknown]
  - Acidosis [Unknown]
  - Hypocalcaemia [Unknown]
  - Prostate cancer [Unknown]
  - Essential hypertension [Unknown]
  - Hyponatraemia [Unknown]
  - Jaundice [Unknown]
  - Hyperlipidaemia [Unknown]
  - Hyperkalaemia [Unknown]
  - Arteriosclerosis [Unknown]
  - Constipation [Unknown]
  - Pain [Unknown]
  - Pain [Unknown]
  - Hypotension [Unknown]
  - Pain [Unknown]
  - Metastases to bone [Unknown]
  - Anaemia [Unknown]
  - Thrombocytopenia [Unknown]
  - Hepatic function abnormal [Unknown]
  - Sepsis [Unknown]
  - Hypophagia [Unknown]
  - Oliguria [Unknown]
  - Renal failure [Unknown]
  - Thrombotic microangiopathy [Unknown]
  - Hypertransaminasaemia [Unknown]
  - Hyperbilirubinaemia [Unknown]
  - Drug ineffective [Unknown]

NARRATIVE: CASE EVENT DATE: 20241013
